FAERS Safety Report 24410457 (Version 1)
Quarter: 2024Q4

REPORT INFORMATION
  Report Type: Report from Study
  Country: US (occurrence: US)
  Receive Date: 20241008
  Receipt Date: 20241008
  Transmission Date: 20250114
  Serious: Yes (Hospitalization, Other)
  Sender: ABBVIE
  Company Number: US-ABBVIE-5948989

PATIENT
  Sex: Female

DRUGS (2)
  1. RESTASIS [Suspect]
     Active Substance: CYCLOSPORINE
     Indication: Product used for unknown indication
     Dosage: CYCLOSPORINE 0.5MG/ML EML
     Route: 047
  2. SYNTHROID [Suspect]
     Active Substance: LEVOTHYROXINE SODIUM
     Indication: Product used for unknown indication
     Route: 048

REACTIONS (29)
  - Blindness unilateral [Unknown]
  - Thrombosis [Unknown]
  - Femur fracture [Unknown]
  - Hospitalisation [Unknown]
  - Spinal cord operation [Unknown]
  - Adverse event [Unknown]
  - Infection [Unknown]
  - Cervical vertebral fracture [Unknown]
  - Balance disorder [Unknown]
  - Spinal operation [Unknown]
  - Hip fracture [Unknown]
  - Hypertension [Unknown]
  - Diabetes mellitus [Unknown]
  - Gait disturbance [Unknown]
  - Malaise [Not Recovered/Not Resolved]
  - Pain in extremity [Unknown]
  - Pain [Unknown]
  - Autoimmune disorder [Unknown]
  - Thyroid cancer [Unknown]
  - Spinal cord disorder [Unknown]
  - Insomnia [Unknown]
  - Asthenia [Not Recovered/Not Resolved]
  - Fall [Unknown]
  - Myocardial infarction [Unknown]
  - Balance disorder [Unknown]
  - Stress [Unknown]
  - Deafness [Not Recovered/Not Resolved]
  - Head injury [Unknown]
  - Surgery [Unknown]

NARRATIVE: CASE EVENT DATE: 20080101
